FAERS Safety Report 7229247-6 (Version None)
Quarter: 2011Q1

REPORT INFORMATION
  Report Type: 
  Country: None (occurrence: None)
  Receive Date: 20110117
  Receipt Date: 20101203
  Transmission Date: 20110831
  Serious: Yes (Other)
  Sender: FDA-Public Use
  Company Number: US-BAXTER-2010BH005679

PATIENT
  Age: 12 Year
  Sex: Male
  Weight: 34 kg

DRUGS (26)
  1. HEPARIN SODIUM INJECTION [Suspect]
     Indication: PARENTERAL NUTRITION
     Route: 065
     Dates: start: 20080301
  2. HEPARIN SODIUM INJECTION [Suspect]
     Route: 042
     Dates: start: 20080315
  3. HEPARIN SODIUM INJECTION [Suspect]
     Route: 042
     Dates: start: 20080326, end: 20080326
  4. HEPARIN SODIUM INJECTION [Suspect]
     Route: 042
     Dates: start: 20080326, end: 20080326
  5. HEPARIN SODIUM INJECTION [Suspect]
     Route: 065
     Dates: start: 20080301
  6. HEPARIN SODIUM INJECTION [Suspect]
     Route: 042
     Dates: start: 20080325, end: 20080328
  7. HEPARIN SODIUM INJECTION [Suspect]
     Route: 042
     Dates: start: 20080315
  8. HEPARIN SODIUM INJECTION [Suspect]
     Indication: APPENDICECTOMY
     Route: 065
     Dates: start: 20080301
  9. CLONIDINE [Concomitant]
     Indication: PRODUCT USED FOR UNKNOWN INDICATION
     Route: 065
  10. HEPARIN SODIUM INJECTION [Suspect]
     Route: 042
     Dates: start: 20080315
  11. HEPARIN SODIUM INJECTION [Suspect]
     Route: 042
     Dates: start: 20080326, end: 20080326
  12. HEPARIN SODIUM INJECTION [Suspect]
     Route: 042
     Dates: start: 20080325, end: 20080328
  13. HEPARIN SODIUM INJECTION [Suspect]
     Route: 042
     Dates: start: 20080326, end: 20080326
  14. HEPARIN SODIUM INJECTION [Suspect]
     Route: 042
     Dates: start: 20080315
  15. HEPARIN SODIUM INJECTION [Suspect]
     Route: 042
     Dates: start: 20080326, end: 20080326
  16. HEPARIN SODIUM INJECTION [Suspect]
     Route: 042
     Dates: start: 20080325, end: 20080328
  17. HEPARIN SODIUM INJECTION [Suspect]
     Route: 042
     Dates: start: 20080326, end: 20080326
  18. HEPARIN SODIUM INJECTION [Suspect]
     Route: 042
     Dates: start: 20080326, end: 20080326
  19. CONCERTA [Concomitant]
     Indication: PRODUCT USED FOR UNKNOWN INDICATION
     Route: 065
  20. HEPARIN SODIUM INJECTION [Suspect]
     Indication: INTRAVENOUS CATHETER MANAGEMENT
     Route: 065
     Dates: start: 20080301
  21. HEPARIN SODIUM INJECTION [Suspect]
     Route: 042
     Dates: start: 20080325, end: 20080328
  22. HEPARIN SODIUM INJECTION [Suspect]
     Route: 042
     Dates: start: 20080301, end: 20080401
  23. RITALIN [Concomitant]
     Indication: PRODUCT USED FOR UNKNOWN INDICATION
     Route: 065
  24. HEPARIN SODIUM INJECTION [Suspect]
     Route: 042
     Dates: start: 20080326, end: 20080326
  25. HEPARIN SODIUM INJECTION [Suspect]
     Route: 042
     Dates: start: 20080301, end: 20080401
  26. TYLENOL [Concomitant]
     Indication: PRODUCT USED FOR UNKNOWN INDICATION
     Route: 065

REACTIONS (23)
  - HAEMORRHAGE [None]
  - ANXIETY [None]
  - ABDOMINAL DISTENSION [None]
  - NAUSEA [None]
  - PLEURAL EFFUSION [None]
  - ABDOMINAL ABSCESS [None]
  - DEPRESSION [None]
  - COAGULATION TIME PROLONGED [None]
  - PYREXIA [None]
  - TRANSAMINASES INCREASED [None]
  - ESCHERICHIA INFECTION [None]
  - EATING DISORDER [None]
  - HYPOTENSION [None]
  - ABDOMINAL ADHESIONS [None]
  - BACTEROIDES INFECTION [None]
  - VOMITING [None]
  - DIARRHOEA [None]
  - ILEUS [None]
  - SEPSIS [None]
  - ATELECTASIS [None]
  - MALNUTRITION [None]
  - ABDOMINAL PAIN [None]
  - HYPOPHAGIA [None]
